FAERS Safety Report 22059174 (Version 2)
Quarter: 2023Q1

REPORT INFORMATION
  Report Type: Report from Study
  Country: US (occurrence: US)
  Receive Date: 20230303
  Receipt Date: 20230309
  Transmission Date: 20230417
  Serious: Yes (Hospitalization, Other)
  Sender: FDA-Public Use
  Company Number: US-GILEAD-2023-0617705

PATIENT

DRUGS (8)
  1. AMBRISENTAN [Suspect]
     Active Substance: AMBRISENTAN
     Indication: Pulmonary arterial hypertension
     Dosage: 10 MG, QD
     Route: 065
     Dates: start: 201611
  2. AMBRISENTAN [Suspect]
     Active Substance: AMBRISENTAN
     Dosage: 10 MG, QD
     Route: 065
     Dates: start: 202010
  3. FLOLAN [Suspect]
     Active Substance: EPOPROSTENOL SODIUM
     Indication: Pulmonary arterial hypertension
     Dosage: UNK
     Route: 065
     Dates: start: 202302
  4. ADEMPAS [Suspect]
     Active Substance: RIOCIGUAT
     Indication: Pulmonary arterial hypertension
     Dosage: 2.5 MG, TID (1 IN 8 HOURS)
     Route: 005
     Dates: start: 201611
  5. ADEMPAS [Suspect]
     Active Substance: RIOCIGUAT
     Dosage: 2.5 MG, TID (1 IN 8 HOURS)
     Route: 065
     Dates: start: 202010
  6. VASOPRESSIN [Concomitant]
     Active Substance: VASOPRESSIN
     Indication: Product used for unknown indication
     Dosage: UNK
     Route: 065
  7. LEVOPHED [Concomitant]
     Active Substance: NOREPINEPHRINE BITARTRATE
     Indication: Product used for unknown indication
     Dosage: UNK
     Route: 065
  8. NEO-SYNEPHRINE [Concomitant]
     Active Substance: PHENYLEPHRINE HYDROCHLORIDE
     Indication: Product used for unknown indication
     Dosage: UNK
     Route: 065

REACTIONS (9)
  - Lung disorder [Unknown]
  - Heart rate increased [Not Recovered/Not Resolved]
  - Muscle spasms [Unknown]
  - Arthralgia [Unknown]
  - Pain in jaw [Unknown]
  - Pain in extremity [Unknown]
  - Malaise [Unknown]
  - Headache [Unknown]
  - Hypotension [Unknown]

NARRATIVE: CASE EVENT DATE: 20230225
